FAERS Safety Report 8400493-9 (Version None)
Quarter: 2012Q2

REPORT INFORMATION
  Report Type: 
  Country: None (occurrence: None)
  Receive Date: 20120531
  Receipt Date: 20120523
  Transmission Date: 20120825
  Serious: Yes (Hospitalization)
  Sender: FDA-Public Use
  Company Number: US-NOVOPROD-349810

PATIENT
  Age: 46 Year
  Sex: Male
  Weight: 126.8 kg

DRUGS (6)
  1. LEVEMIR [Suspect]
     Indication: TYPE 2 DIABETES MELLITUS
     Dosage: UNKNOWN
     Route: 058
     Dates: start: 20120401, end: 20120428
  2. LEVEMIR [Suspect]
     Dosage: 25 U, QD AT NIGHT
     Route: 058
     Dates: start: 20110101, end: 20120401
  3. COREG [Concomitant]
     Indication: PRODUCT USED FOR UNKNOWN INDICATION
     Dosage: 25 MG, UNKNOWN
     Route: 065
  4. PROTONIX [Concomitant]
     Indication: PRODUCT USED FOR UNKNOWN INDICATION
     Dosage: 40 MG, UNKNOWN
     Route: 065
  5. JANUMET [Concomitant]
     Indication: TYPE 2 DIABETES MELLITUS
     Dosage: UNKNOWN
     Route: 048
  6. ASPIRIN [Concomitant]
     Indication: PRODUCT USED FOR UNKNOWN INDICATION
     Dosage: 81 MG, UNKNOWN
     Route: 065

REACTIONS (4)
  - CHEST DISCOMFORT [None]
  - CARDIAC FAILURE CONGESTIVE [None]
  - DYSPNOEA [None]
  - PERICARDITIS [None]
